FAERS Safety Report 9275237 (Version 4)
Quarter: 2015Q2

REPORT INFORMATION
  Report Type: Spontaneous
  Country: US (occurrence: US)
  Receive Date: 20130507
  Receipt Date: 20150624
  Transmission Date: 20150821
  Serious: Yes (Hospitalization)
  Sender: FDA-Public Use
  Company Number: US-BAYER-2013-054521

PATIENT
  Age: 44 Year
  Sex: Female
  Weight: 65.76 kg

DRUGS (1)
  1. MIRENA [Suspect]
     Active Substance: LEVONORGESTREL
     Indication: CONTRACEPTION
     Dosage: 20 MCG/24HR, CONT
     Route: 015
     Dates: start: 20121017, end: 20121024

REACTIONS (6)
  - Depression [None]
  - Emotional distress [None]
  - Uterine perforation [None]
  - Injury [None]
  - Fear of disease [None]
  - Pain [None]

NARRATIVE: CASE EVENT DATE: 201210
